FAERS Safety Report 23667549 (Version 1)
Quarter: 2024Q1

REPORT INFORMATION
  Report Type: Spontaneous
  Country: US (occurrence: US)
  Receive Date: 20240325
  Receipt Date: 20240325
  Transmission Date: 20240409
  Serious: Yes (Life-Threatening, Hospitalization)
  Sender: FDA-Public Use
  Company Number: US-TEVA-VS-3173586

PATIENT
  Age: 19 Year
  Sex: Female

DRUGS (2)
  1. NALTREXONE [Suspect]
     Active Substance: NALTREXONE
     Indication: Bipolar disorder
     Route: 065
  2. PALIPERIDONE [Concomitant]
     Active Substance: PALIPERIDONE
     Indication: Bipolar disorder
     Route: 065

REACTIONS (2)
  - Eosinophilic pneumonia acute [Recovering/Resolving]
  - Respiratory failure [Recovering/Resolving]
